FAERS Safety Report 4337743-4 (Version None)
Quarter: 2004Q2

REPORT INFORMATION
  Report Type: 
  Country: None (occurrence: None)
  Receive Date: 20040408
  Receipt Date: 20040330
  Transmission Date: 20050107
  Serious: Yes (Hospitalization)
  Sender: FDA-Public Use
  Company Number: 2003PK01640

PATIENT
  Age: 52 Year
  Sex: Male
  Weight: 65 kg

DRUGS (11)
  1. GEFITINIB [Suspect]
     Indication: COLORECTAL CANCER
     Dosage: 250 MG DAILY PO
     Route: 048
     Dates: start: 20030707
  2. 5-FLOROURACIL [Suspect]
     Indication: COLORECTAL CANCER
     Dosage: MG IV
     Route: 042
     Dates: start: 20030707, end: 20030707
  3. FLUOROURACIL [Suspect]
     Indication: COLORECTAL CANCER
     Dosage: 2976 MG IV
     Route: 042
     Dates: start: 20030901, end: 20030901
  4. LEUCOVORIN CALCIUM [Suspect]
     Indication: COLORECTAL CANCER
     Dosage: MG
     Dates: start: 20030707, end: 20030707
  5. LEUCOVORIN CALCIUM [Suspect]
     Indication: COLORECTAL CANCER
     Dosage: 930 MG
     Dates: start: 20030901, end: 20030901
  6. OXALIPLATIN [Suspect]
     Indication: COLORECTAL CANCER
     Dates: start: 20030707, end: 20030707
  7. OXALIPLATIN [Suspect]
     Indication: COLORECTAL CANCER
     Dosage: 93 MG IV
     Route: 042
     Dates: start: 20030901, end: 20030901
  8. KEVATRIL [Concomitant]
  9. FORTECORTIN [Concomitant]
  10. CALCIUM [Concomitant]
  11. MAGNESIUM [Concomitant]

REACTIONS (1)
  - PNEUMOTHORAX [None]
